FAERS Safety Report 19645046 (Version 1)
Quarter: 2021Q3

REPORT INFORMATION
  Report Type: Spontaneous
  Country: HR (occurrence: HR)
  Receive Date: 20210802
  Receipt Date: 20210802
  Transmission Date: 20211014
  Serious: Yes (Hospitalization, Other)
  Sender: FDA-Public Use
  Company Number: HR-JNJFOC-20210743690

PATIENT
  Age: 42 Year
  Sex: Male

DRUGS (7)
  1. REMICADE [Suspect]
     Active Substance: INFLIXIMAB
     Indication: COLITIS
     Route: 042
  2. DECORTIN [Concomitant]
     Active Substance: PREDNISONE
  3. REMICADE [Suspect]
     Active Substance: INFLIXIMAB
     Route: 042
  4. REMICADE [Suspect]
     Active Substance: INFLIXIMAB
     Route: 042
  5. CIPROFLOXACIN. [Concomitant]
     Active Substance: CIPROFLOXACIN
  6. METRONIDAZOLE. [Concomitant]
     Active Substance: METRONIDAZOLE
  7. PENTASA [Concomitant]
     Active Substance: MESALAMINE

REACTIONS (12)
  - Therapeutic product effect decreased [Unknown]
  - Mucosal hyperaemia [Unknown]
  - Anal fistula [Unknown]
  - Cellulitis [Unknown]
  - Feeling abnormal [Unknown]
  - Induration [Unknown]
  - Proctalgia [Unknown]
  - Anorectal discomfort [Unknown]
  - Anal abscess [Unknown]
  - Intentional product misuse [Unknown]
  - Pseudopolyp [Unknown]
  - Disease progression [Unknown]

NARRATIVE: CASE EVENT DATE: 200701
